FAERS Safety Report 7265874-8 (Version None)
Quarter: 2011Q1

REPORT INFORMATION
  Report Type: 
  Country: None (occurrence: None)
  Receive Date: 20110131
  Receipt Date: 20110124
  Transmission Date: 20110831
  Serious: Yes (Hospitalization)
  Sender: FDA-Public Use
  Company Number: B0681564A

PATIENT
  Sex: Female

DRUGS (4)
  1. CALTAN [Concomitant]
     Route: 048
     Dates: start: 20101025
  2. TAKEPRON [Concomitant]
     Dates: start: 20101025
  3. SODIUM SULBACTAM + SODIUM AMPICILLIN [Concomitant]
     Dates: start: 20101025
  4. ZOVIRAX [Suspect]
     Indication: ENCEPHALITIS HERPES
     Dosage: 150MG PER DAY
     Route: 042
     Dates: start: 20101025, end: 20101112

REACTIONS (1)
  - ALTERED STATE OF CONSCIOUSNESS [None]
